FAERS Safety Report 5294795-5 (Version None)
Quarter: 2007Q2

REPORT INFORMATION
  Report Type: 
  Country: None (occurrence: None)
  Receive Date: 20070412
  Receipt Date: 20070405
  Transmission Date: 20071010
  Serious: Yes (Death, Hospitalization)
  Sender: FDA-Public Use
  Company Number: PHHO2007AR06169

PATIENT
  Age: 81 Year
  Sex: Male

DRUGS (2)
  1. EXELON [Suspect]
     Indication: DEMENTIA ALZHEIMER'S TYPE
  2. DIOVAN AMLO [Suspect]
     Indication: HYPERTENSION
     Dosage: 160MG DAILY
     Route: 048
     Dates: start: 20060101

REACTIONS (2)
  - CARDIAC FAILURE [None]
  - GASTRIC HAEMORRHAGE [None]
